FAERS Safety Report 25628027 (Version 1)
Quarter: 2025Q3

REPORT INFORMATION
  Report Type: Spontaneous
  Country: US (occurrence: US)
  Receive Date: 20250731
  Receipt Date: 20250731
  Transmission Date: 20251020
  Serious: Yes (Death)
  Sender: AMGEN
  Company Number: US-AMGEN-USASP2025147862

PATIENT
  Sex: Female

DRUGS (1)
  1. PREDNISONE [Suspect]
     Active Substance: PREDNISONE
     Indication: Exposure during pregnancy
     Route: 064

REACTIONS (2)
  - Respiratory failure [Fatal]
  - Premature baby [Unknown]
